FAERS Safety Report 7031006-4 (Version None)
Quarter: 2010Q4

REPORT INFORMATION
  Report Type: 
  Country: None (occurrence: None)
  Receive Date: 20101006
  Receipt Date: 20100803
  Transmission Date: 20110411
  Serious: Yes (Other)
  Sender: FDA-Public Use
  Company Number: US-BRISTOL-MYERS SQUIBB COMPANY-15205057

PATIENT
  Age: 65 Year
  Sex: Male

DRUGS (1)
  1. KENALOG-40 [Suspect]
     Indication: BACK PAIN
     Dosage: NO OF INJ:2; RECEIVED ON 15JUN AND 28JUN,01JUL2010
     Route: 008
     Dates: start: 20100615

REACTIONS (4)
  - FATIGUE [None]
  - NAUSEA [None]
  - SECONDARY ADRENOCORTICAL INSUFFICIENCY [None]
  - WEIGHT DECREASED [None]
